FAERS Safety Report 6617078 (Version 2)
Quarter: 2013Q4

REPORT INFORMATION
  Report Type: Spontaneous
  Country: US (occurrence: US)
  Receive Date: 20080417
  Receipt Date: 20131120
  Transmission Date: 20140711
  Serious: Yes (Other)
  Sender: FDA-Public Use
  Company Number: US-GILEAD-2008-0015359

PATIENT
  Age: 33 Year
  Sex: Female

DRUGS (6)
  1. LETAIRIS [Suspect]
     Indication: PULMONARY ARTERIAL HYPERTENSION
     Route: 048
     Dates: start: 20071120
  2. COUMADIN [Suspect]
     Indication: PULMONARY ARTERIAL HYPERTENSION
  3. REVATIO [Suspect]
     Indication: PULMONARY ARTERIAL HYPERTENSION
  4. LASIX [Concomitant]
     Indication: OEDEMA
     Route: 048
  5. CARDIZEM [Concomitant]
  6. FORTEO [Concomitant]
     Route: 058

REACTIONS (6)
  - Increased tendency to bruise [Not Recovered/Not Resolved]
  - Dyspnoea [Not Recovered/Not Resolved]
  - Drug interaction [Not Recovered/Not Resolved]
  - Oedema [Not Recovered/Not Resolved]
  - Oedema peripheral [Not Recovered/Not Resolved]
  - Palpitations [Not Recovered/Not Resolved]
